FAERS Safety Report 21396144 (Version 1)
Quarter: 2022Q3

REPORT INFORMATION
  Report Type: Spontaneous
  Country: US (occurrence: None)
  Receive Date: 20220928
  Receipt Date: 20220928
  Transmission Date: 20221027
  Serious: No
  Sender: FDA-Public Use
  Company Number: None

PATIENT
  Sex: Female

DRUGS (1)
  1. HUMIRA [Suspect]
     Active Substance: ADALIMUMAB
     Indication: Psoriatic arthropathy
     Dosage: 40MG EVERY 2 WEEKS SUBQ
     Route: 058
     Dates: start: 20210731

REACTIONS (3)
  - Urinary tract infection [None]
  - Kidney infection [None]
  - Therapy interrupted [None]
